FAERS Safety Report 15604423 (Version 1)
Quarter: 2018Q4

REPORT INFORMATION
  Report Type: Spontaneous
  Country: AT (occurrence: AT)
  Receive Date: 20181110
  Receipt Date: 20181110
  Transmission Date: 20190205
  Serious: Yes (Other)
  Sender: FDA-Public Use
  Company Number: PHHY2018AT148201

PATIENT
  Age: 53 Year
  Sex: Female

DRUGS (3)
  1. NILOTINIB [Suspect]
     Active Substance: NILOTINIB
     Indication: CHRONIC MYELOID LEUKAEMIA
     Dosage: 150 MG (2-0-1)
     Route: 065
     Dates: start: 201509
  2. NILOTINIB [Suspect]
     Active Substance: NILOTINIB
     Dosage: DOSE REDUCED
     Route: 065
     Dates: start: 2015, end: 2015
  3. NILOTINIB [Suspect]
     Active Substance: NILOTINIB
     Dosage: 150 MG (2-0-1)
     Route: 065
     Dates: start: 201512, end: 2016

REACTIONS (5)
  - Thrombocytopenia [Recovered/Resolved]
  - Urinary tract infection [Unknown]
  - Anaemia [Recovered/Resolved]
  - Neutropenia [Recovered/Resolved]
  - Pneumonia [Unknown]
